FAERS Safety Report 8598982-X (Version None)
Quarter: 2012Q3

REPORT INFORMATION
  Report Type: 
  Country: None (occurrence: None)
  Receive Date: 20120816
  Receipt Date: 20120808
  Transmission Date: 20120928
  Serious: Yes (Hospitalization)
  Sender: FDA-Public Use
  Company Number: JP-BRISTOL-MYERS SQUIBB COMPANY-16742785

PATIENT
  Age: 65 Year
  Sex: Male
  Weight: 52 kg

DRUGS (17)
  1. OXYCONTIN [Concomitant]
     Indication: PAIN
     Dosage: TAB
     Route: 048
     Dates: start: 20120621
  2. SODIUM PICOSULFATE [Concomitant]
     Indication: CONSTIPATION
     Dosage: SODIUM PICOSULFATE ORAL SOLUTION 0.75%
     Route: 048
     Dates: start: 20120511
  3. PROCARDIA [Concomitant]
     Indication: HYPERTENSION
     Route: 048
  4. ANPLAG [Concomitant]
     Indication: PRINZMETAL ANGINA
     Route: 048
  5. HACHIAZULE [Concomitant]
     Indication: STOMATITIS
     Dates: start: 20120424
  6. LOPERAMIDE [Concomitant]
     Indication: DIARRHOEA
     Dosage: TAB
     Route: 048
     Dates: start: 20120529
  7. ASPIRIN [Concomitant]
     Indication: PRINZMETAL ANGINA
     Route: 048
  8. DEXALTIN [Concomitant]
     Indication: STOMATITIS
     Dates: start: 20120523
  9. CISPLATIN [Suspect]
     Indication: GASTRIC CANCER
     Route: 042
     Dates: start: 20120221, end: 20120724
  10. LIPITOR [Concomitant]
     Indication: PERIPHERAL ARTERIAL OCCLUSIVE DISEASE
     Route: 048
  11. SELBEX [Concomitant]
     Indication: PROPHYLAXIS
     Dosage: CAP
     Route: 048
  12. CHLORPROMAZINE HCL [Concomitant]
     Indication: HICCUPS
     Dosage: TAB
     Route: 048
     Dates: start: 20120229
  13. S-1 [Suspect]
     Indication: GASTRIC CANCER
     Route: 048
     Dates: start: 20120221, end: 20120724
  14. OXYCODONE HYDROCHLORIDE [Concomitant]
     Indication: PAIN
     Route: 048
  15. SIGMART [Concomitant]
     Indication: PRINZMETAL ANGINA
     Dosage: TAB
     Route: 048
  16. ATARAX [Concomitant]
     Indication: HICCUPS
     Dosage: ATARAX P CAPSULES
     Route: 048
     Dates: start: 20120710
  17. LANSOPRAZOLE [Concomitant]
     Indication: HAEMORRHAGE
     Dosage: TAB
     Route: 048
     Dates: start: 20120529

REACTIONS (5)
  - HAEMOGLOBIN DECREASED [None]
  - FATIGUE [None]
  - DECREASED APPETITE [None]
  - FEBRILE NEUTROPENIA [None]
  - ABDOMINAL PAIN [None]
